FAERS Safety Report 19523909 (Version 5)
Quarter: 2021Q3

REPORT INFORMATION
  Report Type: Report from Study
  Country: FR (occurrence: FR)
  Receive Date: 20210713
  Receipt Date: 20210928
  Transmission Date: 20211014
  Serious: Yes (Death, Hospitalization)
  Sender: FDA-Public Use
  Company Number: FR-ROCHE-2864519

PATIENT
  Age: 81 Year
  Sex: Male
  Weight: 76 kg

DRUGS (31)
  1. INNOHEP [Concomitant]
     Active Substance: TINZAPARIN SODIUM
     Route: 058
     Dates: start: 20210129
  2. ZELITREX [Concomitant]
     Active Substance: VALACYCLOVIR HYDROCHLORIDE
     Route: 048
     Dates: start: 20210129
  3. NIVESTIM [Concomitant]
     Active Substance: FILGRASTIM
     Route: 058
     Dates: start: 20210523, end: 20210602
  4. MORPHINE [Concomitant]
     Active Substance: MORPHINE
     Route: 042
     Dates: start: 20210622, end: 20210622
  5. MOSUNETUZUMAB. [Suspect]
     Active Substance: MOSUNETUZUMAB
     Indication: B-CELL LYMPHOMA
     Dosage: START DATE OF MOST RECENT DOSE OF STUDY DRUG PRIOR TO SAE: 10/JUN/2021 (30 MG)
     Route: 042
     Dates: start: 20210128
  6. DOXORUBICIN [Suspect]
     Active Substance: DOXORUBICIN
     Indication: B-CELL LYMPHOMA
     Dosage: START DATE OF MOST RECENT DOSE OF STUDY DRUG PRIOR TO SAE: 10/JUN/2021 (98 MG)
     Route: 042
     Dates: start: 20210128
  7. BIPRETERAX [Concomitant]
     Active Substance: INDAPAMIDE\PERINDOPRIL
     Route: 048
     Dates: start: 20210607
  8. POLARAMINE [Concomitant]
     Active Substance: DEXCHLORPHENIRAMINE MALEATE
     Route: 042
     Dates: start: 20210610, end: 20210610
  9. CYCLOPHOSPHAMIDE. [Suspect]
     Active Substance: CYCLOPHOSPHAMIDE
     Indication: B-CELL LYMPHOMA
     Dosage: START DATE OF MOST RECENT DOSE OF STUDY DRUG PRIOR TO SAE: 10/JUN/2021 (1480 MG)
     Route: 042
     Dates: start: 20210128
  10. PREDNISONE. [Suspect]
     Active Substance: PREDNISONE
     Indication: B-CELL LYMPHOMA
     Dosage: START DATE OF MOST RECENT DOSE OF STUDY DRUG PRIOR TO SAE: 14/JUN/2021 (100 MG)
     Route: 048
     Dates: start: 20210128
  11. IPRATROPIUM [Concomitant]
     Active Substance: IPRATROPIUM
     Route: 055
     Dates: start: 20210627, end: 20210629
  12. TAHOR [Concomitant]
     Active Substance: ATORVASTATIN CALCIUM
     Route: 048
  13. PANTOPRAZOLE [Concomitant]
     Active Substance: PANTOPRAZOLE
     Route: 048
     Dates: start: 20210129
  14. PERMIXON [Concomitant]
     Active Substance: HERBALS\SAW PALMETTO
     Route: 048
     Dates: start: 20210331
  15. ONDANSETRON [Concomitant]
     Active Substance: ONDANSETRON
     Route: 042
     Dates: start: 20210610, end: 20210610
  16. BRICANYL [Concomitant]
     Active Substance: TERBUTALINE SULFATE
     Route: 055
     Dates: start: 20210627, end: 20210629
  17. LASILIX [Concomitant]
     Active Substance: FUROSEMIDE
     Route: 042
     Dates: start: 20210622, end: 20210622
  18. TOCILIZUMAB. [Suspect]
     Active Substance: TOCILIZUMAB
     Indication: B-CELL LYMPHOMA
     Dosage: START DATE OF MOST RECENT DOSE OF STUDY DRUG PRIOR TO SAE: 28/JAN/2021
     Route: 042
     Dates: start: 20210128
  19. BACTRIM [Concomitant]
     Active Substance: SULFAMETHOXAZOLE\TRIMETHOPRIM
     Route: 048
     Dates: start: 20210201
  20. TAMSULOSINE [Concomitant]
     Active Substance: TAMSULOSIN HYDROCHLORIDE
     Route: 048
     Dates: start: 20210408
  21. CEFTAZIDINA [Concomitant]
     Route: 042
     Dates: start: 20210528, end: 20210609
  22. APREPITANT. [Concomitant]
     Active Substance: APREPITANT
     Route: 048
     Dates: start: 20210611, end: 20210612
  23. POLATUZUMAB VEDOTIN. [Suspect]
     Active Substance: POLATUZUMAB VEDOTIN
     Indication: B-CELL LYMPHOMA
     Dosage: START DATE OF MOST RECENT DOSE OF STUDY DRUG PRIOR TO SAE: 10/JUN/2021
     Route: 042
     Dates: start: 20210128
  24. EZETIMIBE. [Concomitant]
     Active Substance: EZETIMIBE
     Route: 048
  25. PARACETAMOL [Concomitant]
     Active Substance: ACETAMINOPHEN
     Route: 042
     Dates: start: 20210610, end: 20210610
  26. ONDANSETRON [Concomitant]
     Active Substance: ONDANSETRON
     Route: 048
     Dates: start: 20210611, end: 20210612
  27. VANCOMYCINE [Concomitant]
     Active Substance: VANCOMYCIN
     Route: 048
     Dates: start: 20210529, end: 20210608
  28. DITROPAN [Concomitant]
     Active Substance: OXYBUTYNIN CHLORIDE
     Route: 048
     Dates: start: 20210518
  29. ALPRAZOLAM. [Concomitant]
     Active Substance: ALPRAZOLAM
     Route: 048
     Dates: start: 20210518
  30. MORPHINE [Concomitant]
     Active Substance: MORPHINE
     Route: 042
     Dates: start: 20210625, end: 20210625
  31. RISORDAN (FRANCE) [Concomitant]
     Route: 042
     Dates: start: 20210622, end: 20210622

REACTIONS (2)
  - Cytomegalovirus infection reactivation [Not Recovered/Not Resolved]
  - Coma [Fatal]

NARRATIVE: CASE EVENT DATE: 20210701
